FAERS Safety Report 18104082 (Version 2)
Quarter: 2020Q3

REPORT INFORMATION
  Report Type: Spontaneous
  Country: DK (occurrence: DK)
  Receive Date: 20200803
  Receipt Date: 20200805
  Transmission Date: 20201103
  Serious: Yes (Other)
  Sender: FDA-Public Use
  Company Number: DK-MYLANLABS-2020M1068011

PATIENT
  Age: 31 Year
  Sex: Female

DRUGS (2)
  1. LEPONEX [Suspect]
     Active Substance: CLOZAPINE
     Indication: PSYCHOTIC DISORDER
     Dosage: UNK
     Route: 048
  2. LYRICA [Suspect]
     Active Substance: PREGABALIN
     Indication: SCHIZOPHRENIA
     Dosage: UNK
     Route: 048
     Dates: start: 200712, end: 200803

REACTIONS (26)
  - Hot flush [Not Recovered/Not Resolved]
  - Learning disability [Not Recovered/Not Resolved]
  - Derealisation [Recovered/Resolved]
  - Suicidal ideation [Not Recovered/Not Resolved]
  - Musculoskeletal stiffness [Not Recovered/Not Resolved]
  - Overweight [Not Recovered/Not Resolved]
  - Thrombosis [Unknown]
  - Impaired work ability [Not Recovered/Not Resolved]
  - Memory impairment [Not Recovered/Not Resolved]
  - Photosensitivity reaction [Not Recovered/Not Resolved]
  - Akathisia [Not Recovered/Not Resolved]
  - Periodontitis [Not Recovered/Not Resolved]
  - Tardive dyskinesia [Not Recovered/Not Resolved]
  - Dry eye [Not Recovered/Not Resolved]
  - Life expectancy shortened [Unknown]
  - Anxiety [Not Recovered/Not Resolved]
  - Disturbance in attention [Not Recovered/Not Resolved]
  - Phlebitis [Not Recovered/Not Resolved]
  - Irritability [Not Recovered/Not Resolved]
  - Rash [Not Recovered/Not Resolved]
  - Fatigue [Not Recovered/Not Resolved]
  - Dental caries [Not Recovered/Not Resolved]
  - Eczema [Not Recovered/Not Resolved]
  - Poor quality sleep [Not Recovered/Not Resolved]
  - Dry mouth [Not Recovered/Not Resolved]
  - Hypercholesterolaemia [Not Recovered/Not Resolved]

NARRATIVE: CASE EVENT DATE: 1987
